FAERS Safety Report 9747750 (Version 2)
Quarter: 2013Q4

REPORT INFORMATION
  Report Type: Spontaneous
  Country: GB (occurrence: US)
  Receive Date: 20131212
  Receipt Date: 20131212
  Transmission Date: 20140711
  Serious: Yes (Other)
  Sender: FDA-Public Use
  Company Number: US-ACCORD-020763

PATIENT
  Age: 36 Year
  Sex: Female

DRUGS (2)
  1. PACLITAXEL [Suspect]
     Indication: SEROUS CYSTADENOCARCINOMA OVARY
     Dosage: GIVEN DAYS 1, 8, AND 15 ON A 28-DAY CYCLE. 6 CYCLES GIVEN.
     Route: 042
  2. CARBOPLATIN [Suspect]
     Indication: SEROUS CYSTADENOCARCINOMA OVARY
     Dosage: AUC-6, GIVEN DAY 1 ON A 28-DAY CYCLE. 6 CYCLES GIVEN.
     Route: 033

REACTIONS (6)
  - Exposure during pregnancy [Unknown]
  - Nausea [Unknown]
  - Vomiting [Unknown]
  - Anaemia [Unknown]
  - Thrombocytopenia [Unknown]
  - Clostridium difficile colitis [Unknown]
